FAERS Safety Report 8792399 (Version 1)
Quarter: 2012Q4

REPORT INFORMATION
  Report Type: 
  Country: FR (occurrence: FR)
  Receive Date: 20120918
  Receipt Date: 20120918
  Transmission Date: 20130627
  Serious: Yes (Hospitalization)
  Sender: FDA-Public Use
  Company Number: PHHY2012FR080331

PATIENT
  Age: 76 Year
  Sex: Male

DRUGS (10)
  1. TEGRETOL LP [Suspect]
     Dosage: 100 mg, BID
     Dates: start: 20120723, end: 20120823
  2. ZONEGRAN [Suspect]
     Dosage: 1 DF, BID
     Dates: start: 20120813
  3. LOVENOX [Suspect]
     Dates: start: 20120802, end: 20120823
  4. VIMPAT [Concomitant]
     Dosage: 200 mg, daily
  5. KEPPRA [Concomitant]
     Dosage: 500 mg, BID
     Dates: start: 20120723
  6. DOMPERIDONE [Concomitant]
  7. ESOMEPRAZOLE [Concomitant]
     Dosage: 40 mg, UNK
  8. SPECIAFOLDINE [Concomitant]
     Dosage: 5 mg, UNK
  9. URBANYL [Concomitant]
     Dosage: 10 mg, BID
  10. PREVISCAN [Concomitant]
     Dosage: 25 mg, daily

REACTIONS (1)
  - Neutropenia [Recovered/Resolved]
